FAERS Safety Report 15627514 (Version 1)
Quarter: 2018Q4

REPORT INFORMATION
  Report Type: Spontaneous
  Country: US (occurrence: US)
  Receive Date: 20181116
  Receipt Date: 20181116
  Transmission Date: 20190205
  Serious: Yes (Death)
  Sender: FDA-Public Use
  Company Number: None

PATIENT
  Sex: Male

DRUGS (10)
  1. ZIPRASIDONE. [Concomitant]
     Active Substance: ZIPRASIDONE
  2. DESVENLAFAXINE. [Concomitant]
     Active Substance: DESVENLAFAXINE
  3. PANTOPRAZOLE [Concomitant]
     Active Substance: PANTOPRAZOLE
  4. QUETIAPINE. [Concomitant]
     Active Substance: QUETIAPINE
  5. SIMVASTATIN. [Concomitant]
     Active Substance: SIMVASTATIN
  6. FOLIC ACID. [Concomitant]
     Active Substance: FOLIC ACID
  7. GABAPENTIN. [Concomitant]
     Active Substance: GABAPENTIN
  8. HUMIRA [Suspect]
     Active Substance: ADALIMUMAB
     Indication: IRIDOCYCLITIS
     Dosage: ?          OTHER FREQUENCY:EVERY 2 WEEKS;?
     Route: 058
     Dates: start: 20180615
  9. ALPRAZOLAM. [Concomitant]
     Active Substance: ALPRAZOLAM
  10. AMLODIPINE [Concomitant]
     Active Substance: AMLODIPINE BESYLATE

REACTIONS (1)
  - Death [None]
